FAERS Safety Report 17294400 (Version 1)
Quarter: 2020Q1

REPORT INFORMATION
  Report Type: Spontaneous
  Country: CH (occurrence: CH)
  Receive Date: 20200121
  Receipt Date: 20200121
  Transmission Date: 20200409
  Serious: Yes (Other)
  Sender: FDA-Public Use
  Company Number: CH-AMERICAN REGENT INC-2020000097

PATIENT
  Age: 25 Year
  Sex: Female
  Weight: 67 kg

DRUGS (1)
  1. FERINJECT [Suspect]
     Active Substance: FERRIC CARBOXYMALTOSE
     Indication: IRON DEFICIENCY
     Dosage: 500 MILLIGRAM IN AN UNSPECIFIED DILUTION AND GIVEN OVER AN UNSPECIFIED PERIOD OF TIME
     Dates: start: 20191220, end: 20191220

REACTIONS (4)
  - Herpes simplex [Recovering/Resolving]
  - Fatigue [Recovering/Resolving]
  - Pain in extremity [Recovering/Resolving]
  - Arthralgia [Recovering/Resolving]

NARRATIVE: CASE EVENT DATE: 20191223
